FAERS Safety Report 14119692 (Version 1)
Quarter: 2017Q4

REPORT INFORMATION
  Report Type: Report from Study
  Country: IN (occurrence: IN)
  Receive Date: 20171024
  Receipt Date: 20171024
  Transmission Date: 20180321
  Serious: Yes (Other)
  Sender: FDA-Public Use
  Company Number: PHHY2017IN153675

PATIENT
  Age: 65 Year
  Sex: Male
  Weight: 75.6 kg

DRUGS (3)
  1. VYMADA [Suspect]
     Active Substance: SACUBITRIL\VALSARTAN
     Indication: CARDIAC FAILURE
     Dosage: 50 MG, QD
     Route: 048
     Dates: start: 20161201
  2. CLOPILET A [Concomitant]
     Active Substance: ASPIRIN\CLOPIDOGREL BISULFATE
     Indication: PRODUCT USED FOR UNKNOWN INDICATION
     Dosage: 150 MG, QD
     Route: 048
  3. SORBITRATE [Concomitant]
     Active Substance: ISOSORBIDE DINITRATE
     Indication: PRODUCT USED FOR UNKNOWN INDICATION
     Dosage: 5 MG, TID
     Route: 048

REACTIONS (5)
  - Ejection fraction decreased [Unknown]
  - Chest pain [Not Recovered/Not Resolved]
  - Inappropriate schedule of drug administration [Unknown]
  - Prescribed underdose [Unknown]
  - Cough [Not Recovered/Not Resolved]

NARRATIVE: CASE EVENT DATE: 20161201
